FAERS Safety Report 9937307 (Version 3)
Quarter: 2014Q2

REPORT INFORMATION
  Report Type: Report from Study
  Country: SE (occurrence: SE)
  Receive Date: 20140302
  Receipt Date: 20140613
  Transmission Date: 20141212
  Serious: Yes (Hospitalization)
  Sender: FDA-Public Use
  Company Number: SE-US-EMD SERONO, INC.-7271575

PATIENT
  Age: 55 Year
  Sex: Female

DRUGS (3)
  1. REBIF [Suspect]
     Indication: RELAPSING-REMITTING MULTIPLE SCLEROSIS
     Route: 058
     Dates: start: 201308
  2. MODIODAL [Concomitant]
     Indication: FATIGUE
     Route: 048
     Dates: start: 2013
  3. ALVEDON [Concomitant]
     Indication: PROPHYLAXIS
     Route: 048
     Dates: start: 2013

REACTIONS (3)
  - Hypertension [Unknown]
  - Deep vein thrombosis [Recovered/Resolved]
  - Thrombophlebitis [Recovered/Resolved]
